FAERS Safety Report 7880864-X (Version None)
Quarter: 2011Q4

REPORT INFORMATION
  Report Type: 
  Country: None (occurrence: None)
  Receive Date: 20111101
  Receipt Date: 20111021
  Transmission Date: 20120403
  Serious: Yes (Death)
  Sender: FDA-Public Use
  Company Number: NL-BAXTER-2011BH033760

PATIENT

DRUGS (3)
  1. IFOSFAMIDE [Suspect]
     Indication: PRODUCT USED FOR UNKNOWN INDICATION
     Route: 065
  2. IFOSFAMIDE [Suspect]
     Route: 065
  3. IFOSFAMIDE [Suspect]
     Route: 065

REACTIONS (1)
  - DEATH [None]
